FAERS Safety Report 10151692 (Version 1)
Quarter: 2014Q2

REPORT INFORMATION
  Report Type: Spontaneous
  Country: BR (occurrence: BR)
  Receive Date: 20140505
  Receipt Date: 20140505
  Transmission Date: 20141212
  Serious: Yes (Other)
  Sender: FDA-Public Use
  Company Number: BR-BEH-2014042304

PATIENT
  Age: 12 Month
  Sex: 0

DRUGS (2)
  1. PROTHROMBIN COMPLEX [Suspect]
     Indication: FACTOR VIII DEFICIENCY
  2. FVIII CONCENTRATE [Suspect]
     Indication: FACTOR VIII DEFICIENCY
     Dosage: 1000IU
     Route: 042

REACTIONS (3)
  - Suspected transmission of an infectious agent via product [Unknown]
  - Parvovirus B19 test positive [Unknown]
  - Factor VIII inhibition [Unknown]
